FAERS Safety Report 8887166 (Version 1)
Quarter: 2012Q4

REPORT INFORMATION
  Report Type: 
  Country: US (occurrence: US)
  Receive Date: 20121105
  Receipt Date: 20121105
  Transmission Date: 20130627
  Serious: Yes (Other)
  Sender: FDA-Public Use
  Company Number: US-PFIZER INC-2012274903

PATIENT
  Age: 11 Month
  Sex: Male
  Weight: 7.26 kg

DRUGS (1)
  1. INFANT ADVIL CONCENTRATED DROPS [Suspect]
     Indication: FEVER
     Dosage: 1.25 ml, 4x/day
     Route: 048
     Dates: start: 20121025, end: 20121028

REACTIONS (3)
  - Haematochezia [Unknown]
  - Bacterial infection [Unknown]
  - Diarrhoea [Unknown]
